FAERS Safety Report 4274153-2 (Version None)
Quarter: 2004Q1

REPORT INFORMATION
  Report Type: 
  Country: None (occurrence: None)
  Receive Date: 20040115
  Receipt Date: 20040105
  Transmission Date: 20041129
  Serious: No
  Sender: FDA-Public Use
  Company Number: 04P-056-0246441-00

PATIENT
  Age: 8 Year
  Sex: Female

DRUGS (1)
  1. DEPAKENE [Suspect]
     Dosage: 150 ML, 1 IN 1 D, PER ORAL
     Route: 048
     Dates: start: 20030701, end: 20030701

REACTIONS (4)
  - DRUG INEFFECTIVE [None]
  - DRUG LEVEL DECREASED [None]
  - MEDICATION ERROR [None]
  - PETIT MAL EPILEPSY [None]
